FAERS Safety Report 8052500-3 (Version None)
Quarter: 2012Q1

REPORT INFORMATION
  Report Type: 
  Country: None (occurrence: None)
  Receive Date: 20120118
  Receipt Date: 20120112
  Transmission Date: 20120608
  Serious: Yes (Hospitalization)
  Sender: FDA-Public Use
  Company Number: US-PFIZER INC-2011253663

PATIENT
  Sex: Male

DRUGS (1)
  1. SUTENT [Suspect]
     Indication: RENAL CELL CARCINOMA
     Dosage: 50 MG, 1X/DAY
     Route: 048
     Dates: start: 20111026

REACTIONS (7)
  - STOMATITIS [None]
  - MUCOSAL INFLAMMATION [None]
  - DEHYDRATION [None]
  - DYSURIA [None]
  - FATIGUE [None]
  - ASTHENIA [None]
  - DECREASED APPETITE [None]
